FAERS Safety Report 8833784 (Version 2)
Quarter: 2013Q1

REPORT INFORMATION
  Report Type: Spontaneous
  Country: GB (occurrence: None)
  Receive Date: 20121005
  Receipt Date: 20121019
  Transmission Date: 20140127
  Serious: Yes (Disabling, Other)
  Sender: FDA-Public Use
  Company Number: 2012-01426

PATIENT
  Age: 64 Year
  Sex: Female
  Weight: 48.1 kg

DRUGS (8)
  1. SIMVASTATIN [Suspect]
     Indication: HYPERCHOLESTEROLAEMIA
     Route: 048
     Dates: start: 20100128
  2. ATORVASTATIN (UNKNOWN) [Suspect]
     Indication: HYPERCHOLESTEROLAEMIA
     Route: 048
     Dates: start: 20100609
  3. PRAVASTATIN [Suspect]
     Indication: HYPERCHOLESTEROLAEMIA
     Route: 048
     Dates: start: 20100205
  4. AMLODIPINE [Concomitant]
  5. BENDROFLUAZIDE [Concomitant]
  6. DOTHIEPIN HYDROCHLORIDE (PROTHIADEN) [Concomitant]
  7. SENNA [Concomitant]
  8. PARACETAMOL [Concomitant]

REACTIONS (20)
  - Vision blurred [None]
  - Depression [None]
  - Diplopia [None]
  - Ear discomfort [None]
  - Pruritus [None]
  - Muscle spasms [None]
  - Paraesthesia [None]
  - Local swelling [None]
  - Weight decreased [None]
  - Skin depigmentation [None]
  - Pruritus [None]
  - Vasodilatation [None]
  - Fatigue [None]
  - Cachexia [None]
  - Muscle atrophy [None]
  - Dry skin [None]
  - Fatigue [None]
  - Muscular weakness [None]
  - Hepatomegaly [None]
  - Hepatic steatosis [None]
